FAERS Safety Report 6037962-5 (Version None)
Quarter: 2009Q1

REPORT INFORMATION
  Report Type: 
  Country: None (occurrence: None)
  Receive Date: 20090114
  Receipt Date: 20090114
  Transmission Date: 20090719
  Serious: Yes (Hospitalization)
  Sender: FDA-Public Use
  Company Number: None

PATIENT
  Sex: Female

DRUGS (1)
  1. DIOVAN [Suspect]
     Indication: BLOOD PRESSURE
     Dosage: ONE A DAY
     Dates: start: 19990101, end: 20080918

REACTIONS (6)
  - BLOOD DISORDER [None]
  - CONTUSION [None]
  - ERYTHEMA [None]
  - HAEMORRHAGE [None]
  - POISONING [None]
  - PRURITUS [None]
